FAERS Safety Report 5239605-7 (Version None)
Quarter: 2007Q1

REPORT INFORMATION
  Report Type: 
  Country: None (occurrence: None)
  Receive Date: 20070216
  Receipt Date: 20070215
  Transmission Date: 20070707
  Serious: Yes (Other)
  Sender: FDA-Public Use
  Company Number: US-GLAXOSMITHKLINE-A0624907A

PATIENT
  Sex: Female

DRUGS (9)
  1. AVANDIA [Suspect]
     Dosage: 4MG PER DAY
     Route: 048
  2. INSULIN INJECTION [Concomitant]
  3. PRANDIN [Concomitant]
  4. NORVASC [Concomitant]
  5. VASOTEC [Concomitant]
  6. LABETALOL HCL [Concomitant]
  7. PREVACID [Concomitant]
  8. ANACIN [Concomitant]
  9. PRAVACHOL [Concomitant]

REACTIONS (7)
  - DRUG INEFFECTIVE [None]
  - FLUID RETENTION [None]
  - HUNGER [None]
  - HYPERGLYCAEMIA [None]
  - HYPOGLYCAEMIA [None]
  - SINUSITIS [None]
  - WEIGHT INCREASED [None]
